FAERS Safety Report 9241905 (Version 3)
Quarter: 2013Q2

REPORT INFORMATION
  Report Type: Report from Study
  Country: US (occurrence: US)
  Receive Date: 20130419
  Receipt Date: 20130528
  Transmission Date: 20140414
  Serious: Yes (Other)
  Sender: FDA-Public Use
  Company Number: US-UCBSA-083337

PATIENT
  Age: 33 Year
  Sex: Female
  Weight: 45.3 kg

DRUGS (5)
  1. CIMZIA [Suspect]
     Indication: CROHN^S DISEASE
     Route: 058
     Dates: start: 20090511
  2. ENTOCORT [Concomitant]
     Indication: CROHN^S DISEASE
     Dates: start: 20090415, end: 20110622
  3. XIFAXAN [Concomitant]
     Indication: CROHN^S DISEASE
     Dosage: 600MG DAILY
     Dates: start: 20090529, end: 20120411
  4. XIFAXAN [Concomitant]
     Indication: CROHN^S DISEASE
     Dosage: 550MG DAILY
     Dates: start: 20120412
  5. CIPRO [Concomitant]
     Indication: CROHN^S DISEASE
     Dates: start: 20090415, end: 20090513

REACTIONS (2)
  - Urinary tract infection [Recovered/Resolved]
  - Haematuria [Recovered/Resolved]
